FAERS Safety Report 8159070-X (Version None)
Quarter: 2012Q1

REPORT INFORMATION
  Report Type: 
  Country: None (occurrence: None)
  Receive Date: 20120217
  Receipt Date: 20120130
  Transmission Date: 20120608
  Serious: Yes (Hospitalization)
  Sender: FDA-Public Use
  Company Number: CPI 3058

PATIENT
  Age: 79 Year
  Sex: Female
  Weight: 75.7507 kg

DRUGS (4)
  1. MIDAZOLAM [Concomitant]
  2. OFIRMEV [Suspect]
     Indication: PROCEDURAL PAIN
     Dosage: 1000MG 1-TIME, IV
     Route: 042
     Dates: start: 20120126
  3. CALDOLOR [Suspect]
     Indication: PROCEDURAL PAIN
     Dosage: 800 MG OVER 15M 1-TIME IV
     Route: 042
     Dates: start: 20120126
  4. PROPOFOL [Concomitant]

REACTIONS (3)
  - ERYTHEMA [None]
  - TACHYCARDIA [None]
  - HYPOTENSION [None]
